FAERS Safety Report 17050832 (Version 2)
Quarter: 2020Q1

REPORT INFORMATION
  Report Type: Spontaneous
  Country: FR (occurrence: FR)
  Receive Date: 20191120
  Receipt Date: 20200109
  Transmission Date: 20200409
  Serious: Yes (Other)
  Sender: FDA-Public Use
  Company Number: FR-AUROBINDO-AUR-APL-2019-072661

PATIENT
  Age: 23 Year
  Sex: Female
  Weight: 65 kg

DRUGS (1)
  1. TRAMADOL ARROW [Suspect]
     Active Substance: TRAMADOL
     Indication: ANALGESIC INTERVENTION SUPPORTIVE THERAPY
     Dosage: 1 DOSAGE FORM TOTAL
     Route: 042
     Dates: start: 20180824, end: 20180824

REACTIONS (2)
  - Dyspnoea [Recovered/Resolved]
  - Uterine contractions abnormal [Recovered/Resolved]

NARRATIVE: CASE EVENT DATE: 20180824
